FAERS Safety Report 4444976-5 (Version None)
Quarter: 2004Q3

REPORT INFORMATION
  Report Type: 
  Country: None (occurrence: None)
  Receive Date: 20040907
  Receipt Date: 20040907
  Transmission Date: 20050211
  Serious: Yes (Hospitalization)
  Sender: FDA-Public Use
  Company Number: None

PATIENT
  Age: 34 Year
  Sex: Female
  Weight: 156.0374 kg

DRUGS (8)
  1. SEROQUEL [Suspect]
     Indication: DEPRESSION
     Dosage: 300 MG Q PM
  2. PLACEBO [Suspect]
  3. WELLBUTRIN [Concomitant]
  4. TOPAMAX [Concomitant]
  5. EFFEXOR XR [Concomitant]
  6. TRAZODONE HCL [Concomitant]
  7. SINGULAIR [Concomitant]
  8. ALBUTEROL [Concomitant]

REACTIONS (2)
  - CONDITION AGGRAVATED [None]
  - DEPRESSION [None]
